FAERS Safety Report 8943840 (Version 2)
Quarter: 2012Q4

REPORT INFORMATION
  Report Type: Report from Study
  Country: CN (occurrence: CN)
  Receive Date: 20121204
  Receipt Date: 20121207
  Transmission Date: 20130627
  Serious: Yes (Other)
  Sender: FDA-Public Use
  Company Number: PHHO2012CN016952

PATIENT
  Sex: Male

DRUGS (2)
  1. ICL670A [Suspect]
     Indication: IRON OVERLOAD
     Dosage: 375 mg, UNK
     Route: 048
     Dates: start: 201204
  2. ICL670A [Suspect]
     Indication: THALASSAEMIA BETA

REACTIONS (4)
  - General physical health deterioration [Unknown]
  - Upper respiratory tract infection [Recovered/Resolved]
  - Nasopharyngitis [Recovered/Resolved]
  - Cough [Recovered/Resolved]
